FAERS Safety Report 5747321-8 (Version None)
Quarter: 2008Q2

REPORT INFORMATION
  Report Type: 
  Country: None (occurrence: None)
  Receive Date: 20080523
  Receipt Date: 20080516
  Transmission Date: 20081010
  Serious: Yes (Other)
  Sender: FDA-Public Use
  Company Number: US-BAYER-200823235NA

PATIENT
  Sex: Female

DRUGS (1)
  1. MIRENA [Suspect]
     Indication: DRUG USE FOR UNKNOWN INDICATION
     Route: 015

REACTIONS (4)
  - DISCOMFORT [None]
  - ECTOPIC PREGNANCY WITH INTRAUTERINE DEVICE [None]
  - IUCD COMPLICATION [None]
  - IUD MIGRATION [None]
